FAERS Safety Report 18565149 (Version 1)
Quarter: 2020Q4

REPORT INFORMATION
  Report Type: Spontaneous
  Country: US (occurrence: US)
  Receive Date: 20201201
  Receipt Date: 20201201
  Transmission Date: 20210114
  Serious: Yes (Hospitalization, Other)
  Sender: FDA-Public Use
  Company Number: US-SAOL THERAPEUTICS-2020SAO00493

PATIENT
  Age: 21 Year
  Sex: Male

DRUGS (3)
  1. LIORESAL [Suspect]
     Active Substance: BACLOFEN
     Dosage: UNK; DOSE WENT DOWN BY 90%
     Route: 037
     Dates: start: 202011
  2. ^SOME CONCOMITANT PRODUCTS^ (UNSPECIFIED) [Concomitant]
  3. LIORESAL [Suspect]
     Active Substance: BACLOFEN
     Indication: MUSCLE SPASTICITY
     Dosage: ^A DOSE OF ALMOST 1000 ?G/DAY^ AS OF 12-NOV-2020
     Route: 037
     Dates: start: 2007, end: 202011

REACTIONS (10)
  - Respiratory disorder [Unknown]
  - Device issue [Unknown]
  - Mental status changes [Recovered/Resolved]
  - Electrocardiogram QT prolonged [Unknown]
  - Lethargy [Unknown]
  - Cardiac arrest [Unknown]
  - Overdose [Unknown]
  - Somnolence [Unknown]
  - Bradycardia [Unknown]
  - Wrong technique in product usage process [Unknown]

NARRATIVE: CASE EVENT DATE: 202008
